FAERS Safety Report 17562496 (Version 3)
Quarter: 2020Q2

REPORT INFORMATION
  Report Type: Spontaneous
  Country: DE (occurrence: DE)
  Receive Date: 20200319
  Receipt Date: 20200526
  Transmission Date: 20200713
  Serious: Yes (Other)
  Sender: FDA-Public Use
  Company Number: DE-PFIZER INC-2020115771

PATIENT
  Sex: Male

DRUGS (2)
  1. CYTOTEC [Suspect]
     Active Substance: MISOPROSTOL
     Dosage: 250 UG, TOTAL (10 AM 100UG, 3 PM 100UG, 7 PM 50 UG)
     Route: 064
     Dates: start: 20121006, end: 20121006
  2. CYTOTEC [Suspect]
     Active Substance: MISOPROSTOL
     Indication: LABOUR INDUCTION
     Dosage: 50 UG TOTAL (1X 50 UG)
     Route: 064
     Dates: start: 20121005, end: 20121005

REACTIONS (3)
  - Foetal exposure during delivery [Unknown]
  - Pulmonary haemorrhage neonatal [Recovered/Resolved]
  - Foetal distress syndrome [Recovered/Resolved]

NARRATIVE: CASE EVENT DATE: 20121006
